FAERS Safety Report 8482753-9 (Version None)
Quarter: 2012Q3

REPORT INFORMATION
  Report Type: 
  Country: None (occurrence: None)
  Receive Date: 20120702
  Receipt Date: 20120622
  Transmission Date: 20120928
  Serious: Yes (Disabling)
  Sender: FDA-Public Use
  Company Number: US-PERRIGO-12US005512

PATIENT
  Age: 44 Year
  Sex: Male

DRUGS (3)
  1. HALOBETASOL PROPIONATE 0.05% 9R5 [Suspect]
     Indication: ECZEMA
  2. HALOBETASOL PROPIONATE 0.05% 9R5 [Suspect]
     Indication: CUTANEOUS LUPUS ERYTHEMATOSUS
  3. HALOBETASOL PROPIONATE 0.05% 9R5 [Suspect]
     Indication: ROSACEA
     Dosage: UNK
     Route: 061
     Dates: start: 20120101

REACTIONS (9)
  - FEELING ABNORMAL [None]
  - FATIGUE [None]
  - PRURITUS [None]
  - SKIN DISCOLOURATION [None]
  - INSOMNIA [None]
  - ANGER [None]
  - ANXIETY [None]
  - MUSCLE FATIGUE [None]
  - DRUG INEFFECTIVE [None]
